FAERS Safety Report 6181251-5 (Version None)
Quarter: 2009Q2

REPORT INFORMATION
  Report Type: 
  Country: None (occurrence: None)
  Receive Date: 20090504
  Receipt Date: 20090423
  Transmission Date: 20091009
  Serious: Yes (Congenital Anomaly)
  Sender: FDA-Public Use
  Company Number: 6050902

PATIENT
  Sex: Male

DRUGS (4)
  1. LEVOTHYROXINE SODIUM [Suspect]
     Indication: DRUG EXPOSURE DURING PREGNANCY
     Dosage: 50 MCG (50 MCG, 1 D); TRANSPLACENTAL
     Route: 064
  2. EFFEXOR [Suspect]
     Indication: DRUG EXPOSURE DURING PREGNANCY
     Dosage: 2 DOSAGE FORMS (2 DOSAGE FORMS, 1 D); TRANSPLACENTAL
     Route: 064
  3. TRANDATE [Suspect]
     Indication: DRUG EXPOSURE DURING PREGNANCY
     Dosage: 2 DOSAGE FORMS, (2 DOSAGE FORMS,  1 D); TRANSPLACENTAL
     Route: 064
  4. ASPEGIC NOURRISSON (ACETYLSALICYLIC ACID) [Suspect]
     Indication: DRUG EXPOSURE DURING PREGNANCY
     Dosage: 100 MG (100 MG, 1 D); TRANSPLACENTAL
     Route: 064
     Dates: end: 20080801

REACTIONS (3)
  - CARDIAC DISORDER [None]
  - COARCTATION OF THE AORTA [None]
  - MATERNAL DRUGS AFFECTING FOETUS [None]
